FAERS Safety Report 20190518 (Version 2)
Quarter: 2022Q1

REPORT INFORMATION
  Report Type: Spontaneous
  Country: US (occurrence: US)
  Receive Date: 20211215
  Receipt Date: 20220131
  Transmission Date: 20220424
  Serious: Yes (Hospitalization, Other)
  Sender: FDA-Public Use
  Company Number: US-ALXN-A202113527

PATIENT
  Sex: Female

DRUGS (2)
  1. ULTOMIRIS [Suspect]
     Active Substance: RAVULIZUMAB-CWVZ
     Indication: Atypical haemolytic uraemic syndrome
     Dosage: UNK
  2. VITAMIN B12 [Suspect]
     Active Substance: CYANOCOBALAMIN
     Indication: Cerebrovascular accident
     Dosage: UNK
     Route: 065
     Dates: start: 202110

REACTIONS (5)
  - Cerebrovascular accident [Unknown]
  - Hemiplegia [Unknown]
  - Urine analysis abnormal [Unknown]
  - Urinary incontinence [Unknown]
  - Renal disorder [Unknown]
